FAERS Safety Report 24599805 (Version 3)
Quarter: 2024Q4

REPORT INFORMATION
  Report Type: Spontaneous
  Country: JP (occurrence: JP)
  Receive Date: 20241110
  Receipt Date: 20241213
  Transmission Date: 20250115
  Serious: Yes (Other)
  Sender: ALEXION PHARMACEUTICALS
  Company Number: JP-ASTRAZENECA-240119066_013120_P_1

PATIENT

DRUGS (8)
  1. TREMELIMUMAB [Suspect]
     Active Substance: TREMELIMUMAB
     Indication: Hepatocellular carcinoma
  2. TREMELIMUMAB [Suspect]
     Active Substance: TREMELIMUMAB
     Route: 041
  3. TREMELIMUMAB [Suspect]
     Active Substance: TREMELIMUMAB
  4. TREMELIMUMAB [Suspect]
     Active Substance: TREMELIMUMAB
     Route: 041
  5. DURVALUMAB [Suspect]
     Active Substance: DURVALUMAB
     Indication: Hepatocellular carcinoma
  6. DURVALUMAB [Suspect]
     Active Substance: DURVALUMAB
     Route: 041
  7. DURVALUMAB [Suspect]
     Active Substance: DURVALUMAB
  8. DURVALUMAB [Suspect]
     Active Substance: DURVALUMAB
     Route: 041

REACTIONS (2)
  - Septic shock [Unknown]
  - Hepatic steatosis [Unknown]
